FAERS Safety Report 19873550 (Version 1)
Quarter: 2021Q3

REPORT INFORMATION
  Report Type: Spontaneous
  Country: CH (occurrence: CH)
  Receive Date: 20210922
  Receipt Date: 20210922
  Transmission Date: 20211014
  Serious: Yes (Death, Hospitalization, Other)
  Sender: FDA-Public Use
  Company Number: CH-GLAXOSMITHKLINE-CH2021GSK191216

PATIENT
  Age: 70 Year
  Sex: Male

DRUGS (15)
  1. MYCOPHENOLIC ACID. [Suspect]
     Active Substance: MYCOPHENOLIC ACID
     Indication: IMMUNOSUPPRESSANT DRUG THERAPY
     Dosage: 1440 MG, 1D
  2. NOREPINEPHRINE. [Concomitant]
     Active Substance: NOREPINEPHRINE
     Dosage: UNK (12 UG/MIN)
  3. LAMIVUDINE HIV [Suspect]
     Active Substance: LAMIVUDINE
     Indication: HIV INFECTION
     Dosage: 150 MG
  4. TACROLIMUS. [Suspect]
     Active Substance: TACROLIMUS
     Indication: IMMUNOSUPPRESSANT DRUG THERAPY
     Dosage: 7 MG
  5. PREDNISONE. [Suspect]
     Active Substance: PREDNISONE
     Indication: IMMUNOSUPPRESSANT DRUG THERAPY
     Dosage: 10 MG, 1D
  6. DOLUTEGRAVIR [Concomitant]
     Active Substance: DOLUTEGRAVIR
     Indication: HIV INFECTION
     Dosage: 50 MG
  7. NOREPINEPHRINE. [Concomitant]
     Active Substance: NOREPINEPHRINE
     Dosage: UNK (2?4 UG/MIN)
  8. NOREPINEPHRINE. [Concomitant]
     Active Substance: NOREPINEPHRINE
     Indication: SUPPORTIVE CARE
     Dosage: UNK (4 UG/MIN)
  9. CLINDAMYCIN. [Concomitant]
     Active Substance: CLINDAMYCIN
     Indication: ANTIBIOTIC THERAPY
     Dosage: UNK
  10. ABACAVIR. [Suspect]
     Active Substance: ABACAVIR
     Indication: HIV INFECTION
     Dosage: 600 MG
  11. VALGANCICLOVIR. [Suspect]
     Active Substance: VALGANCICLOVIR
     Indication: PRODUCT USED FOR UNKNOWN INDICATION
     Dosage: 450 MG, QD
  12. LAMIVUDINE HIV [Interacting]
     Active Substance: LAMIVUDINE
     Dosage: 100 MG
  13. IMIPENEM [Concomitant]
     Active Substance: IMIPENEM
     Indication: ANTIBIOTIC THERAPY
     Dosage: UNK
  14. NOREPINEPHRINE. [Concomitant]
     Active Substance: NOREPINEPHRINE
     Dosage: UNK (50 UG/MIN)
  15. SULFAMETHOXAZOLE + TRIMETHOPRIM [Interacting]
     Active Substance: SULFAMETHOXAZOLE\TRIMETHOPRIM
     Indication: PRODUCT USED FOR UNKNOWN INDICATION
     Dosage: UNK (800/160 MG 1?/D 3 ? PER WEEK)

REACTIONS (23)
  - Hyperlactacidaemia [Unknown]
  - Drug eruption [Unknown]
  - Skin warm [Unknown]
  - Renal impairment [Unknown]
  - Drug level above therapeutic [Unknown]
  - Multiple organ dysfunction syndrome [Fatal]
  - Lactic acidosis [Fatal]
  - Anaemia macrocytic [Unknown]
  - Hypoalbuminaemia [Unknown]
  - Necrotising fasciitis [Unknown]
  - Cardiac dysfunction [Unknown]
  - Hepatic failure [Unknown]
  - Oedema peripheral [Unknown]
  - Haemodynamic instability [Unknown]
  - Pseudomonas infection [Unknown]
  - Hypoglycaemia [Unknown]
  - Drug interaction [Unknown]
  - Renal failure [Unknown]
  - Mitochondrial toxicity [Unknown]
  - Escherichia infection [Unknown]
  - Sepsis [Fatal]
  - Normochromic anaemia [Unknown]
  - Acute kidney injury [Unknown]
